FAERS Safety Report 12974983 (Version 2)
Quarter: 2017Q1

REPORT INFORMATION
  Report Type: Spontaneous
  Country: JP (occurrence: JP)
  Receive Date: 20161125
  Receipt Date: 20170310
  Transmission Date: 20170428
  Serious: Yes (Hospitalization)
  Sender: FDA-Public Use
  Company Number: JP-PFIZER INC-2016545565

PATIENT
  Age: 72 Year
  Sex: Female

DRUGS (10)
  1. SEIBULE [Suspect]
     Active Substance: MIGLITOL
     Indication: TYPE 2 DIABETES MELLITUS
     Dosage: 150 MG, UNK
     Route: 048
     Dates: start: 20140802, end: 20150803
  2. PARIET [Concomitant]
     Active Substance: RABEPRAZOLE SODIUM
     Dosage: UNK
     Dates: end: 20150803
  3. MAINTATE [Concomitant]
     Active Substance: BISOPROLOL FUMARATE
     Dosage: UNK
  4. LIPITOR [Concomitant]
     Active Substance: ATORVASTATIN CALCIUM
     Dosage: UNK
  5. LENDORMIN [Concomitant]
     Active Substance: BROTIZOLAM
     Dosage: UNK
  6. LANTUS [Concomitant]
     Active Substance: INSULIN GLARGINE
     Dosage: UNK
     Dates: end: 20150803
  7. BAYASPIRIN [Concomitant]
     Active Substance: ASPIRIN
     Dosage: 100 MG, UNK
  8. SUINY [Suspect]
     Active Substance: ANAGLIPTIN
     Indication: TYPE 2 DIABETES MELLITUS
     Dosage: 100 MG, 2X/DAY
     Route: 048
     Dates: start: 20141009, end: 20150803
  9. NOVORAPID [Concomitant]
     Active Substance: INSULIN ASPART
     Dosage: UNK
     Dates: end: 20150803
  10. EPADEL [Concomitant]
     Active Substance: ICOSAPENT
     Dosage: UNK
     Dates: start: 20140802

REACTIONS (1)
  - Rheumatoid arthritis [Recovering/Resolving]

NARRATIVE: CASE EVENT DATE: 20150717
